FAERS Safety Report 5406068-8 (Version None)
Quarter: 2007Q3

REPORT INFORMATION
  Report Type: 
  Country: None (occurrence: None)
  Receive Date: 20070806
  Receipt Date: 20070731
  Transmission Date: 20080115
  Serious: Yes (Life-Threatening)
  Sender: FDA-Public Use
  Company Number: B0482041A

PATIENT
  Age: 75 Year
  Sex: Male
  Weight: 50 kg

DRUGS (11)
  1. CEFAZOLIN [Suspect]
     Indication: INFECTION
     Dosage: 1G PER DAY
     Route: 042
     Dates: start: 20070718, end: 20070718
  2. SOLULACT [Concomitant]
     Dates: start: 20070628
  3. INTRALIPID 10% [Concomitant]
     Dates: start: 20070628
  4. NEOLAMIN [Concomitant]
     Dates: start: 20060628
  5. STRONG NEO MINOPHAGEN C [Concomitant]
     Dates: start: 20070718
  6. SAXIZON [Concomitant]
     Route: 042
     Dates: start: 20070718
  7. OXYGEN [Concomitant]
     Route: 055
     Dates: start: 20070718
  8. SOLDEM [Concomitant]
  9. LEVOFLOXACIN [Concomitant]
  10. ZITHROMAC [Concomitant]
  11. CEFZON [Concomitant]

REACTIONS (14)
  - ALTERED STATE OF CONSCIOUSNESS [None]
  - ANAPHYLACTIC SHOCK [None]
  - DRUG ERUPTION [None]
  - DYSPNOEA [None]
  - ERYTHEMA [None]
  - FALL [None]
  - GAZE PALSY [None]
  - LOSS OF CONSCIOUSNESS [None]
  - MUSCULOSKELETAL STIFFNESS [None]
  - NAUSEA [None]
  - PRURITUS [None]
  - RASH [None]
  - RETROGRADE AMNESIA [None]
  - VOMITING [None]
